FAERS Safety Report 5684680-9 (Version None)
Quarter: 2008Q1

REPORT INFORMATION
  Report Type: 
  Country: None (occurrence: None)
  Receive Date: 20080328
  Receipt Date: 20070611
  Transmission Date: 20080703
  Serious: Yes (Other)
  Sender: FDA-Public Use
  Company Number: US-BRISTOL-MYERS SQUIBB COMPANY-13811351

PATIENT
  Sex: Female

DRUGS (2)
  1. ERBITUX [Suspect]
     Indication: NEOPLASM MALIGNANT
  2. RADIATION THERAPY [Concomitant]

REACTIONS (4)
  - ERYTHEMA [None]
  - EYELID OEDEMA [None]
  - RASH [None]
  - SWELLING FACE [None]
